FAERS Safety Report 18798942 (Version 1)
Quarter: 2021Q1

REPORT INFORMATION
  Report Type: Spontaneous
  Country: US (occurrence: US)
  Receive Date: 20210127
  Receipt Date: 20210127
  Transmission Date: 20210419
  Serious: Yes (Life-Threatening, Hospitalization)
  Sender: FDA-Public Use
  Company Number: None

PATIENT
  Age: 79 Year
  Sex: Female
  Weight: 90 kg

DRUGS (1)
  1. APIXABAN [Suspect]
     Active Substance: APIXABAN

REACTIONS (1)
  - Infarction [None]

NARRATIVE: CASE EVENT DATE: 20210127
